FAERS Safety Report 8317417-5 (Version None)
Quarter: 2012Q2

REPORT INFORMATION
  Report Type: 
  Country: None (occurrence: None)
  Receive Date: 20120427
  Receipt Date: 20120418
  Transmission Date: 20120825
  Serious: Yes (Hospitalization)
  Sender: FDA-Public Use
  Company Number: US-JNJFOC-20120205629

PATIENT
  Sex: Female
  Weight: 64 kg

DRUGS (6)
  1. IRON [Concomitant]
  2. HUMALOG [Concomitant]
  3. REMICADE [Suspect]
     Indication: COLITIS ULCERATIVE
     Route: 042
     Dates: start: 20091221
  4. REMICADE [Suspect]
     Route: 042
     Dates: start: 20120406
  5. MESALAMINE [Concomitant]
     Route: 048
  6. M.V.I. [Concomitant]

REACTIONS (1)
  - COLITIS ULCERATIVE [None]
